FAERS Safety Report 7049350-3 (Version None)
Quarter: 2010Q4

REPORT INFORMATION
  Report Type: 
  Country: None (occurrence: None)
  Receive Date: 20101018
  Receipt Date: 20101012
  Transmission Date: 20110411
  Serious: Yes (Hospitalization, Other)
  Sender: FDA-Public Use
  Company Number: US-SHIRE-SPV1-2010-01248

PATIENT
  Age: 28 Year
  Sex: Female
  Weight: 72 kg

DRUGS (4)
  1. AGRYLIN [Suspect]
     Indication: THROMBOCYTOSIS
     Dosage: 1.5 MG, 2X/DAY:BID
     Route: 048
     Dates: start: 20071101, end: 20100318
  2. AGRYLIN [Suspect]
     Dosage: 1.5 MG, 3X/DAY:TID
     Route: 048
     Dates: start: 20100319
  3. HYDROCHLOROTHIAZIDE [Concomitant]
     Indication: OEDEMA
     Dosage: 50 MG, 1X/DAY:QD
     Route: 048
     Dates: start: 20071101
  4. PAMELOR [Concomitant]
     Indication: DEPRESSION
     Dosage: 10 MG, 1X/DAY:QD
     Route: 048
     Dates: start: 20070101

REACTIONS (6)
  - DEHYDRATION [None]
  - DRUG EXPOSURE DURING PREGNANCY [None]
  - FALL [None]
  - LOSS OF CONSCIOUSNESS [None]
  - THROMBOCYTOSIS [None]
  - VERTIGO [None]
